FAERS Safety Report 7395151-6 (Version None)
Quarter: 2011Q2

REPORT INFORMATION
  Report Type: 
  Country: None (occurrence: None)
  Receive Date: 20110405
  Receipt Date: 20110323
  Transmission Date: 20111010
  Serious: Yes (Hospitalization)
  Sender: FDA-Public Use
  Company Number: PHHY2010TW17500

PATIENT
  Sex: Male

DRUGS (2)
  1. GLEEVEC [Suspect]
     Indication: GASTROINTESTINAL STROMAL TUMOUR
     Dosage: 400 MG-800 MG, UNK
     Route: 048
  2. SUTENT [Suspect]
     Indication: GASTROINTESTINAL STROMAL TUMOUR
     Dosage: 3 DF, UNK
     Dates: start: 20110101

REACTIONS (7)
  - BLISTER [None]
  - NEOPLASM MALIGNANT [None]
  - PLEURAL EFFUSION [None]
  - GASTROOESOPHAGEAL REFLUX DISEASE [None]
  - SKIN EROSION [None]
  - GASTROINTESTINAL STROMAL TUMOUR [None]
  - ANAEMIA [None]
